FAERS Safety Report 6420228-9 (Version None)
Quarter: 2009Q4

REPORT INFORMATION
  Report Type: 
  Country: None (occurrence: None)
  Receive Date: 20091029
  Receipt Date: 20091019
  Transmission Date: 20100525
  Serious: Yes (Hospitalization, Other)
  Sender: FDA-Public Use
  Company Number: PHHY2009BR26109

PATIENT
  Sex: Female
  Weight: 71 kg

DRUGS (3)
  1. TRILEPTAL [Suspect]
     Indication: CONVULSION
     Dosage: ONE TABLET AT 8:30, HALF A TABLET AT 16:30 AND ONE AND HALF TABLET AT 23:30
  2. FRISIUM [Suspect]
     Dosage: UNK
     Route: 048
  3. PROPRANOLOL [Concomitant]
     Indication: HYPERTENSION
     Dosage: 1 DF, BID
     Route: 048

REACTIONS (13)
  - ASTHENIA [None]
  - BLOOD PRESSURE INCREASED [None]
  - CRYING [None]
  - GAIT DISTURBANCE [None]
  - HEADACHE [None]
  - HYPOKINESIA [None]
  - HYPONATRAEMIA [None]
  - JOINT SWELLING [None]
  - LABYRINTHITIS [None]
  - NIGHTMARE [None]
  - POOR QUALITY SLEEP [None]
  - SENSORY DISTURBANCE [None]
  - WEIGHT INCREASED [None]
